FAERS Safety Report 13999020 (Version 1)
Quarter: 2017Q3

REPORT INFORMATION
  Report Type: Spontaneous
  Country: CZ (occurrence: CZ)
  Receive Date: 20170922
  Receipt Date: 20170922
  Transmission Date: 20171128
  Serious: Yes (Other)
  Sender: FDA-Public Use
  Company Number: CZ-GLAXOSMITHKLINE-CZ2017146745

PATIENT

DRUGS (2)
  1. LAMICTAL [Suspect]
     Active Substance: LAMOTRIGINE
     Indication: PRODUCT USED FOR UNKNOWN INDICATION
     Dosage: 200 MG, UNK
     Route: 064
  2. ORFIRIL LONG [Interacting]
     Active Substance: VALPROIC ACID
     Dosage: 800 MG, UNK
     Route: 064

REACTIONS (3)
  - Drug interaction [Unknown]
  - Foetal exposure during pregnancy [Unknown]
  - Growth retardation [Unknown]
